FAERS Safety Report 8073719-1 (Version None)
Quarter: 2012Q1

REPORT INFORMATION
  Report Type: 
  Country: None (occurrence: None)
  Receive Date: 20120126
  Receipt Date: 20120118
  Transmission Date: 20120608
  Serious: Yes (Hospitalization)
  Sender: FDA-Public Use
  Company Number: PH-MERCK-1201USA02563

PATIENT
  Age: 64 Year
  Sex: Female

DRUGS (1)
  1. FOSAMAX PLUS D [Suspect]
     Indication: OSTEOPENIA
     Route: 048
     Dates: start: 20090101, end: 20110701

REACTIONS (6)
  - FALL [None]
  - GROIN PAIN [None]
  - ADVERSE EVENT [None]
  - FEMUR FRACTURE [None]
  - BONE DISORDER [None]
  - PRODUCT ADHESION ISSUE [None]
